FAERS Safety Report 7577168-1 (Version None)
Quarter: 2011Q2

REPORT INFORMATION
  Report Type: 
  Country: None (occurrence: None)
  Receive Date: 20110621
  Receipt Date: 20110606
  Transmission Date: 20111010
  Serious: Yes (Other)
  Sender: FDA-Public Use
  Company Number: AUR-APL-2011-02780

PATIENT
  Age: 85 Year
  Sex: Female

DRUGS (4)
  1. RISPERIDONE [Suspect]
     Indication: PRODUCT USED FOR UNKNOWN INDICATION
     Dosage: (1 MG, 1 D) , UNKNOWN;(0.5 MG, 1 D), UNKNOWN
  2. PIMOZIDE (PIMOZIDE) [Suspect]
     Indication: PRODUCT USED FOR UNKNOWN INDICATION
     Dosage: (1 MG, 1 D), UNKNOWN
  3. QUETIAPINE FUMARATE [Suspect]
     Indication: PRODUCT USED FOR UNKNOWN INDICATION
     Dosage: (25 MG, 1 D), UNKNOWN
  4. DIPHENHYDRAMINE HCL [Suspect]
     Indication: PRODUCT USED FOR UNKNOWN INDICATION
     Dosage: (25 MG, 1 D), UNKNOWN

REACTIONS (7)
  - TARDIVE DYSKINESIA [None]
  - SKIN LESION [None]
  - FATIGUE [None]
  - INSOMNIA [None]
  - EXCORIATION [None]
  - DELUSION [None]
  - DYSKINESIA [None]
